FAERS Safety Report 15783842 (Version 1)
Quarter: 2019Q1

REPORT INFORMATION
  Report Type: Spontaneous
  Country: US (occurrence: US)
  Receive Date: 20190102
  Receipt Date: 20190102
  Transmission Date: 20190417
  Serious: No
  Sender: FDA-Public Use
  Company Number: US-BIOGEN-2018BI00553604

PATIENT
  Sex: Male

DRUGS (1)
  1. TYSABRI [Suspect]
     Active Substance: NATALIZUMAB
     Indication: MULTIPLE SCLEROSIS
     Route: 065
     Dates: start: 20180305, end: 20180406

REACTIONS (6)
  - Inappropriate schedule of product administration [Unknown]
  - Pain in extremity [Not Recovered/Not Resolved]
  - Urticaria [Unknown]
  - Pruritus [Not Recovered/Not Resolved]
  - Pain [Unknown]
  - Headache [Unknown]
